FAERS Safety Report 7659069-3 (Version None)
Quarter: 2011Q3

REPORT INFORMATION
  Report Type: 
  Country: None (occurrence: None)
  Receive Date: 20110805
  Receipt Date: 20110729
  Transmission Date: 20111222
  Serious: Yes (Hospitalization, Other)
  Sender: FDA-Public Use
  Company Number: DE-B.I. PHARMACEUTICALS,INC./RIDGEFIELD-2009-DE-07241DE

PATIENT
  Sex: Male
  Weight: 100 kg

DRUGS (5)
  1. PRADAXA [Suspect]
     Indication: THROMBOSIS PROPHYLAXIS
     Dosage: 220 MG
     Dates: start: 20091009, end: 20091021
  2. FRAXIPARIN [Concomitant]
     Indication: ANTICOAGULANT THERAPY
     Dosage: 2 ML
     Dates: start: 20091021, end: 20091030
  3. PRADAXA [Suspect]
     Indication: HIP ARTHROPLASTY
  4. PRADAXA [Suspect]
     Indication: KNEE ARTHROPLASTY
  5. MARCUMAR [Concomitant]
     Indication: ANTICOAGULANT THERAPY
     Dosage: 3 MG
     Dates: start: 20091022

REACTIONS (3)
  - DRUG INEFFECTIVE [None]
  - PULMONARY EMBOLISM [None]
  - DEEP VEIN THROMBOSIS [None]
